FAERS Safety Report 16400862 (Version 1)
Quarter: 2019Q2

REPORT INFORMATION
  Report Type: Spontaneous
  Country: US (occurrence: US)
  Receive Date: 20190606
  Receipt Date: 20190606
  Transmission Date: 20190711
  Serious: Yes (Other)
  Sender: FDA-Public Use
  Company Number: US-PFIZER INC-2016180397

PATIENT
  Age: 24 Year
  Sex: Male
  Weight: 66.67 kg

DRUGS (1)
  1. BENEFIX [Suspect]
     Active Substance: COAGULATION FACTOR IX RECOMBINANT HUMAN\ISOPROPYL ALCOHOL
     Indication: HAEMOPHILIA B WITHOUT INHIBITORS
     Dosage: 100 IU/KG, AS NEEDED(6700 UNITS (+/- 10%), 100 UNITS/KG (66.68 KGS) DAILY ON DEMAND)

REACTIONS (1)
  - Haemorrhage [Unknown]
